FAERS Safety Report 26065036 (Version 2)
Quarter: 2025Q4

REPORT INFORMATION
  Report Type: Spontaneous
  Country: US (occurrence: US)
  Receive Date: 20251119
  Receipt Date: 20251212
  Transmission Date: 20260118
  Serious: Yes (Hospitalization)
  Sender: RADIUS PHARM
  Company Number: US-RADIUS HEALTH INC.-US-RADIUS-25055546

PATIENT
  Sex: Male

DRUGS (1)
  1. TYMLOS [Suspect]
     Active Substance: ABALOPARATIDE
     Indication: Bone disorder
     Dosage: 80 MICROGRAM, QD
     Route: 058

REACTIONS (7)
  - Syncope [Unknown]
  - Headache [Unknown]
  - Dizziness [Unknown]
  - Tension headache [Unknown]
  - Fatigue [Unknown]
  - Vertigo [Unknown]
  - Prescribed underdose [Unknown]
